FAERS Safety Report 4279163-7 (Version None)
Quarter: 2004Q1

REPORT INFORMATION
  Report Type: 
  Country: None (occurrence: None)
  Receive Date: 20040122
  Receipt Date: 20040109
  Transmission Date: 20041129
  Serious: Yes (Hospitalization)
  Sender: FDA-Public Use
  Company Number: RS004024-CDN

PATIENT
  Age: 72 Year
  Sex: Female
  Weight: 108.8633 kg

DRUGS (4)
  1. RABEPRAZOLE SODIUM [Suspect]
     Indication: GASTROOESOPHAGEAL REFLUX DISEASE
     Dosage: 10 MG, 1 IN 1 D, ORAL
     Route: 048
     Dates: start: 20030703, end: 20030914
  2. TIAZAC [Concomitant]
  3. SYNTHROID [Concomitant]
  4. CHLORAZEPAM (CLONAZEPAM) [Concomitant]

REACTIONS (4)
  - AGORAPHOBIA [None]
  - CHEST PAIN [None]
  - LOOSE STOOLS [None]
  - PANIC ATTACK [None]
